FAERS Safety Report 11684072 (Version 1)
Quarter: 2015Q4

REPORT INFORMATION
  Report Type: Spontaneous
  Country: US (occurrence: US)
  Receive Date: 20151029
  Receipt Date: 20151029
  Transmission Date: 20160304
  Serious: Yes (Other)
  Sender: FDA-Public Use
  Company Number: CHPA2015US012667

PATIENT
  Age: 62 Year
  Sex: Male

DRUGS (1)
  1. EXCEDRIN MIGRAINE [Suspect]
     Active Substance: ACETAMINOPHEN\ASPIRIN\CAFFEINE
     Indication: MIGRAINE PROPHYLAXIS
     Dosage: 1 OR 2 PILLS, QD
     Route: 065

REACTIONS (2)
  - Neoplasm malignant [Unknown]
  - Off label use [Unknown]
